FAERS Safety Report 10050668 (Version 1)
Quarter: 2014Q2

REPORT INFORMATION
  Report Type: Spontaneous
  Country: US (occurrence: US)
  Receive Date: 20140401
  Receipt Date: 20140401
  Transmission Date: 20141212
  Serious: No
  Sender: FDA-Public Use
  Company Number: US-ASTRAZENECA-2013SE64007

PATIENT
  Age: 74 Year
  Sex: Female
  Weight: 54.4 kg

DRUGS (3)
  1. NEXIUM [Suspect]
     Indication: GASTROOESOPHAGEAL REFLUX DISEASE
     Dosage: 40 MG, ONCE DAILY AS REQUIRED
     Route: 048
     Dates: start: 201305
  2. CITRACAL [Concomitant]
     Indication: OSTEOPOROSIS
     Dosage: NOT REPORTED NR
     Route: 048
  3. VITAMIN D [Concomitant]
     Indication: OSTEOPOROSIS
     Dosage: NOT REPORTED NR
     Route: 048

REACTIONS (3)
  - Gastrooesophageal reflux disease [Unknown]
  - Abdominal pain upper [Unknown]
  - Intentional product misuse [Unknown]
